FAERS Safety Report 5258422-5 (Version None)
Quarter: 2007Q1

REPORT INFORMATION
  Report Type: 
  Country: None (occurrence: None)
  Receive Date: 20070302
  Receipt Date: 20070220
  Transmission Date: 20070707
  Serious: Yes (Other)
  Sender: FDA-Public Use
  Company Number: 73487A

PATIENT
  Age: 51 Year
  Sex: Male

DRUGS (1)
  1. PREVIDENT 5000  PLUS TOOTHPASTE [DURAPHAT 5000 -UK] [Suspect]
     Indication: DENTAL CLEANING
     Dosage: ONE DOSE, ORAL
     Route: 048
     Dates: start: 20070216, end: 20070216

REACTIONS (4)
  - HYPERSENSITIVITY [None]
  - HYPOAESTHESIA ORAL [None]
  - PHARYNGEAL OEDEMA [None]
  - SWELLING FACE [None]
